FAERS Safety Report 16258423 (Version 2)
Quarter: 2019Q2

REPORT INFORMATION
  Report Type: Report from Study
  Country: US (occurrence: US)
  Receive Date: 20190430
  Receipt Date: 20190510
  Transmission Date: 20190711
  Serious: Yes (Hospitalization)
  Sender: FDA-Public Use
  Company Number: US-ACTELION-A-NJ2017-149609

PATIENT
  Age: 7 Year
  Sex: Male
  Weight: 23.13 kg

DRUGS (4)
  1. TYVASO [Suspect]
     Active Substance: TREPROSTINIL
     Indication: PULMONARY ARTERIAL HYPERTENSION
     Dosage: 18-54 MCG (3-9 BREATHS), QID
     Route: 055
     Dates: start: 20170914
  2. TRACLEER [Suspect]
     Active Substance: BOSENTAN
     Indication: PULMONARY ARTERIAL HYPERTENSION
     Dosage: 31.25 MG, BID
  3. ADCIRCA [Concomitant]
     Active Substance: TADALAFIL
  4. TRACLEER [Suspect]
     Active Substance: BOSENTAN
     Dosage: 62.5 MG, BID
     Dates: end: 201904

REACTIONS (16)
  - Flushing [Unknown]
  - Liver function test increased [Unknown]
  - Cough [Unknown]
  - Retching [Unknown]
  - Anxiety [Unknown]
  - Unevaluable event [Unknown]
  - Hepatic function abnormal [Unknown]
  - Insomnia [Recovering/Resolving]
  - Nasopharyngitis [Unknown]
  - Viral infection [Unknown]
  - Nasal congestion [Unknown]
  - Tympanic membrane perforation [Unknown]
  - Pain [Unknown]
  - Oropharyngeal pain [Unknown]
  - Hypotension [Unknown]
  - Pulmonary arterial pressure abnormal [Unknown]

NARRATIVE: CASE EVENT DATE: 201701
